FAERS Safety Report 4704255-5 (Version None)
Quarter: 2005Q2

REPORT INFORMATION
  Report Type: 
  Country: None (occurrence: None)
  Receive Date: 20050628
  Receipt Date: 20050617
  Transmission Date: 20051028
  Serious: Yes (Death, Hospitalization)
  Sender: FDA-Public Use
  Company Number: 2005082632

PATIENT
  Age: 68 Year
  Sex: Male

DRUGS (28)
  1. DIFLUCAN [Suspect]
     Indication: SYSTEMIC MYCOSIS
     Dosage: 200 MG (DAILY), ORAL
     Route: 048
     Dates: start: 20050311, end: 20050408
  2. ATENOLOL [Suspect]
     Indication: ANGINA UNSTABLE
     Dosage: 25 MG (DAILY), ORAL
     Route: 048
     Dates: start: 20041224, end: 20050408
  3. ALDACTONE [Suspect]
     Indication: RENAL FAILURE
     Dosage: 75 MG (DAILY), ORAL
     Route: 048
     Dates: start: 20041224, end: 20050408
  4. SOLU-MEDROL [Suspect]
     Indication: ILL-DEFINED DISORDER
     Dosage: 1 GRAM, INTRAVENOUS
     Route: 042
     Dates: start: 20041225, end: 20041227
  5. PRODIF (FOSFLUCONAZOLE) [Suspect]
     Indication: SYSTEMIC MYCOSIS
     Dosage: SEE IMAGE
     Route: 042
     Dates: start: 20050309, end: 20050310
  6. PRODIF (FOSFLUCONAZOLE) [Suspect]
     Indication: SYSTEMIC MYCOSIS
     Dosage: SEE IMAGE
     Route: 042
     Dates: start: 20050311, end: 20050323
  7. PRODIF (FOSFLUCONAZOLE) [Suspect]
     Indication: SYSTEMIC MYCOSIS
     Dosage: SEE IMAGE
     Route: 042
     Dates: start: 20050408
  8. ASPIRIN [Suspect]
     Indication: ANGINA UNSTABLE
     Dosage: 100 MG (DAILY), ORAL
     Route: 048
     Dates: start: 20041224, end: 20050408
  9. ALLOPURINOL [Suspect]
     Indication: HYPERURICAEMIA
     Dosage: 100 MG, ORAL
     Route: 048
     Dates: start: 20041224, end: 20050408
  10. NEORAL [Suspect]
     Indication: NEPHROTIC SYNDROME
     Dosage: 150 MG (DAILY), ORAL
     Route: 048
     Dates: start: 20050205, end: 20050407
  11. NEORAL [Suspect]
     Indication: NEPHROTIC SYNDROME
     Dosage: 150 MG (DAILY), ORAL
     Route: 048
     Dates: start: 20050220, end: 20050408
  12. PERSANTIN [Suspect]
     Indication: PROTEINURIA
     Dosage: 300 MG (DAILY), ORAL
     Route: 048
     Dates: start: 20041224, end: 20050408
  13. LOCHOL (FLUVASTATIN SODIUM) [Suspect]
     Indication: HYPERCHOLESTEROLAEMIA
     Dosage: 30 MG (DAILY), ORAL
     Route: 048
     Dates: start: 20050125, end: 20050408
  14. LASIX [Suspect]
     Indication: RENAL FAILURE
     Dosage: 80 MG (DAILY), ORAL
     Route: 048
     Dates: start: 20041224, end: 20050408
  15. NU LOTAN (LOSARTAN POTASSIUM) [Suspect]
     Indication: PROTEINURIA
     Dosage: 50 MG (DAILY), ORAL
     Route: 048
     Dates: start: 20041224, end: 20050408
  16. SIGMART (NICORANDIL) [Suspect]
     Indication: ANGINA UNSTABLE
     Dosage: SEE IMAGE
     Dates: start: 20050309, end: 20050408
  17. SIGMART (NICORANDIL) [Suspect]
     Indication: ANGINA UNSTABLE
     Dosage: SEE IMAGE
     Dates: start: 20050408, end: 20050412
  18. ROXATIDINE ACETATE HCL [Suspect]
     Indication: PROPHYLAXIS AGAINST GASTROINTESTINAL ULCER
     Dosage: SEE IMAGE
     Route: 048
     Dates: start: 20041228, end: 20050413
  19. ROXATIDINE ACETATE HCL [Suspect]
     Indication: PROPHYLAXIS AGAINST GASTROINTESTINAL ULCER
     Dosage: SEE IMAGE
     Route: 048
     Dates: start: 20050414, end: 20050418
  20. TICLOPIDINE HCL [Suspect]
     Indication: ANGINA UNSTABLE
     Dosage: 200 MG (DAILY), ORAL
     Route: 048
     Dates: start: 20050307, end: 20050408
  21. PREDNISOLONE [Suspect]
     Indication: ILL-DEFINED DISORDER
     Dosage: 30-40 MG/DAY, INTRAVENOUS
     Route: 042
     Dates: start: 20041224, end: 20041227
  22. PREDNISOLONE [Suspect]
     Indication: ILL-DEFINED DISORDER
     Dosage: 30-40 MG/DAY, INTRAVENOUS
     Route: 042
     Dates: start: 20041230, end: 20050408
  23. PREDNISOLONE [Suspect]
     Indication: ILL-DEFINED DISORDER
     Dosage: 30-40 MG/DAY, INTRAVENOUS
     Route: 042
     Dates: start: 20050408
  24. MUCOSTA (REBAMIPIDE) [Concomitant]
  25. PRERAN (TRANDOLAPRIL) [Concomitant]
  26. FLUMARIN (FLOMOXEF SODIUM) [Concomitant]
  27. CATABON (DOPAMINE HYDROCHLORIDE) [Concomitant]
  28. MODACIN (CEFTAZIDIME) [Concomitant]

REACTIONS (13)
  - ACUTE RESPIRATORY DISTRESS SYNDROME [None]
  - DIARRHOEA [None]
  - DRUG INEFFECTIVE [None]
  - ESCHERICHIA SEPSIS [None]
  - GRANULOCYTOPENIA [None]
  - HAEMODIALYSIS [None]
  - IMMUNOSUPPRESSION [None]
  - NEPHRITIS [None]
  - PNEUMONIA [None]
  - PURPURA [None]
  - SEPTIC SHOCK [None]
  - SKIN ULCER [None]
  - WHITE BLOOD CELL COUNT DECREASED [None]
